FAERS Safety Report 4338118-4 (Version None)
Quarter: 2004Q2

REPORT INFORMATION
  Report Type: 
  Country: None (occurrence: None)
  Receive Date: 20040413
  Receipt Date: 20040413
  Transmission Date: 20050107
  Serious: Yes (Disabling)
  Sender: FDA-Public Use
  Company Number: None

PATIENT
  Age: 50 Year
  Sex: Female
  Weight: 56.6996 kg

DRUGS (2)
  1. ZICAM NO-DRIP NASAL GEL COLD REMEDY^ [Suspect]
     Indication: NASAL CONGESTION
     Dosage: 1 SQUEEZE EACH NOSTRIL
     Route: 045
     Dates: start: 20040217
  2. ZICAM NO-DRIP NASAL GEL COLD REMEDY^ [Suspect]
     Indication: NASOPHARYNGITIS
     Dosage: 1 SQUEEZE EACH NOSTRIL
     Route: 045
     Dates: start: 20040217

REACTIONS (2)
  - PAROSMIA [None]
  - THROAT IRRITATION [None]
